FAERS Safety Report 11310451 (Version 2)
Quarter: 2015Q3

REPORT INFORMATION
  Report Type: Report from Study
  Country: BR (occurrence: BR)
  Receive Date: 20150724
  Receipt Date: 20150811
  Transmission Date: 20151125
  Serious: Yes (Other)
  Sender: FDA-Public Use
  Company Number: PHHY2015BR086954

PATIENT
  Age: 66 Year
  Sex: Female
  Weight: 62 kg

DRUGS (7)
  1. METFORMIN HYDROCHLORIDE. [Concomitant]
     Active Substance: METFORMIN HYDROCHLORIDE
     Indication: PRODUCT USED FOR UNKNOWN INDICATION
     Dosage: 2 DF, QD
     Route: 048
  2. DIOVAN AMLO FIX [Suspect]
     Active Substance: AMLODIPINE\VALSARTAN
     Dosage: 2 DF (AMLODIPINE 5 MG, VALSARTAN 160 MG), QD
     Route: 048
  3. SIMVASTATIN. [Concomitant]
     Active Substance: SIMVASTATIN
     Indication: PRODUCT USED FOR UNKNOWN INDICATION
     Dosage: 1 DF, QD
     Route: 048
  4. RECOMBINANT HUMAN INSULIN [Concomitant]
     Active Substance: INSULIN HUMAN
     Indication: PRODUCT USED FOR UNKNOWN INDICATION
     Dosage: 40 IU (30 IU IN THE MORNING, 10 IU IN THE NIGHT), UNK
     Route: 065
  5. DIOVAN AMLO FIX [Suspect]
     Active Substance: AMLODIPINE\VALSARTAN
     Indication: HYPERTENSION
     Dosage: 1 DF (AMLODIPINE 5 MG, VALSARTAN 160 MG), QD
     Route: 048
  6. RIVOTRIL [Concomitant]
     Active Substance: CLONAZEPAM
     Indication: PRODUCT USED FOR UNKNOWN INDICATION
     Dosage: 3 DRP, UNK
     Route: 048
  7. PURAN [Concomitant]
     Active Substance: LEVOTHYROXINE SODIUM
     Indication: PRODUCT USED FOR UNKNOWN INDICATION
     Dosage: 1 DF, UNK
     Route: 048

REACTIONS (3)
  - Haemorrhagic stroke [Recovering/Resolving]
  - Abasia [Recovering/Resolving]
  - Aphasia [Recovering/Resolving]

NARRATIVE: CASE EVENT DATE: 20150426
